FAERS Safety Report 19952241 (Version 2)
Quarter: 2021Q4

REPORT INFORMATION
  Report Type: Spontaneous
  Country: US (occurrence: US)
  Receive Date: 20211013
  Receipt Date: 20211213
  Transmission Date: 20220303
  Serious: Yes (Other)
  Sender: FDA-Public Use
  Company Number: US-BAYER-2021A225902

PATIENT
  Age: 38 Year
  Sex: Female

DRUGS (1)
  1. MIRENA [Suspect]
     Active Substance: LEVONORGESTREL
     Indication: Contraception
     Dosage: 20?G/DAY
     Route: 015
     Dates: start: 202102

REACTIONS (5)
  - Device expulsion [Not Recovered/Not Resolved]
  - Ovarian cyst [None]
  - Pelvic pain [None]
  - Device difficult to use [None]
  - Abnormal uterine bleeding [None]

NARRATIVE: CASE EVENT DATE: 20210916
